FAERS Safety Report 8925296 (Version 2)
Quarter: 2012Q4

REPORT INFORMATION
  Report Type: 
  Country: US (occurrence: US)
  Receive Date: 20121126
  Receipt Date: 20121227
  Transmission Date: 20130627
  Serious: Yes (Other)
  Sender: FDA-Public Use
  Company Number: US-BAYER-2012-121460

PATIENT
  Age: 59 Year
  Sex: Female

DRUGS (6)
  1. STIVARGA [Suspect]
     Indication: RECTAL CANCER
     Dosage: 160 mg daily
     Dates: start: 20121008
  2. STIVARGA [Suspect]
     Indication: RECTAL CANCER
     Dosage: 20 mg at night
  3. STIVARGA [Suspect]
     Indication: RECTAL CANCER
     Dosage: 120 mg daily
  4. NEXIUM [Concomitant]
     Indication: GERD
     Dosage: 48 mg, UNK
     Dates: start: 20120720
  5. LISINOPRIL [Concomitant]
     Indication: HYPERTENSION
     Dosage: 10 mg
     Dates: start: 20101207
  6. LISINOPRIL [Concomitant]
     Indication: HYPERTENSION
     Dosage: 20 mg, UNK

REACTIONS (2)
  - Hypertensive crisis [Recovered/Resolved]
  - Headache [Recovered/Resolved]
